FAERS Safety Report 15278607 (Version 1)
Quarter: 2018Q3

REPORT INFORMATION
  Report Type: Spontaneous
  Country: TW (occurrence: TW)
  Receive Date: 20180815
  Receipt Date: 20180815
  Transmission Date: 20181010
  Serious: Yes (Other)
  Sender: FDA-Public Use
  Company Number: TW-AMGEN-TWNSP2018088052

PATIENT
  Age: 59 Year
  Sex: Female

DRUGS (4)
  1. ARAVA [Concomitant]
     Active Substance: LEFLUNOMIDE
     Dosage: 10 MG, 2X/DAY (BID)
     Route: 048
     Dates: start: 20180808
  2. ENBREL [Suspect]
     Active Substance: ETANERCEPT
     Indication: PSORIATIC ARTHROPATHY
     Dosage: 25 MG, 2X/WEEK(BIW)
     Route: 058
     Dates: start: 20121204, end: 20180620
  3. ENBREL [Suspect]
     Active Substance: ETANERCEPT
     Dosage: 25 MG, Q6D
     Route: 058
     Dates: start: 20180808
  4. ARAVA [Concomitant]
     Active Substance: LEFLUNOMIDE
     Dosage: 10 MG, 2X/DAY (BID)
     Route: 048

REACTIONS (2)
  - Product use issue [Unknown]
  - Cellulitis [Recovered/Resolved]

NARRATIVE: CASE EVENT DATE: 20180808
